FAERS Safety Report 5213126-X (Version None)
Quarter: 2007Q1

REPORT INFORMATION
  Report Type: 
  Country: None (occurrence: None)
  Receive Date: 20070119
  Receipt Date: 20070109
  Transmission Date: 20070707
  Serious: Yes (Hospitalization)
  Sender: FDA-Public Use
  Company Number: JP-AVENTIS-200710053JP

PATIENT
  Age: 40 Year
  Sex: Female

DRUGS (2)
  1. ALLEGRA [Suspect]
  2. CHINESE HERBAL MEDICINE [Concomitant]

REACTIONS (1)
  - STEVENS-JOHNSON SYNDROME [None]
